FAERS Safety Report 5672703-2 (Version None)
Quarter: 2008Q1

REPORT INFORMATION
  Report Type: 
  Country: None (occurrence: None)
  Receive Date: 20080317
  Receipt Date: 20080303
  Transmission Date: 20080703
  Serious: Yes (Hospitalization, Other)
  Sender: FDA-Public Use
  Company Number: 024874

PATIENT
  Age: 65 Year
  Sex: Female

DRUGS (1)
  1. MEGESTROL ACETATE [Suspect]
     Indication: APPETITE DISORDER

REACTIONS (3)
  - ADRENAL INSUFFICIENCY [None]
  - PORTAL VEIN THROMBOSIS [None]
  - THERAPY CESSATION [None]
